FAERS Safety Report 15248085 (Version 3)
Quarter: 2019Q1

REPORT INFORMATION
  Report Type: Spontaneous
  Country: DE (occurrence: DE)
  Receive Date: 20180807
  Receipt Date: 20190308
  Transmission Date: 20190417
  Serious: Yes (Life-Threatening, Hospitalization)
  Sender: FDA-Public Use
  Company Number: DE-HIKMA PHARMACEUTICALS USA INC.-DE-H14001-18-06193

PATIENT
  Age: 53 Year
  Sex: Male
  Weight: 117.5 kg

DRUGS (18)
  1. FTC/TDF TABLET [Suspect]
     Active Substance: EMTRICITABINE\TENOFOVIR DISOPROXIL FUMARATE
     Route: 048
     Dates: start: 20180718
  2. PLACEBO [Suspect]
     Active Substance: UNSPECIFIED INGREDIENT
     Route: 048
     Dates: start: 20170815, end: 201709
  3. BATRAFEN [Concomitant]
     Indication: PRODUCT USED FOR UNKNOWN INDICATION
     Route: 065
     Dates: start: 20180215
  4. CEFUROXIME. [Suspect]
     Active Substance: CEFUROXIME
     Indication: DIVERTICULITIS
     Route: 042
  5. FTC/TDF TABLET [Suspect]
     Active Substance: EMTRICITABINE\TENOFOVIR DISOPROXIL FUMARATE
     Route: 048
     Dates: start: 20170529, end: 20170813
  6. PLACEBO [Suspect]
     Active Substance: UNSPECIFIED INGREDIENT
     Indication: PROPHYLAXIS AGAINST HIV INFECTION
     Route: 048
     Dates: start: 20170524
  7. FTC/TDF TABLET [Suspect]
     Active Substance: EMTRICITABINE\TENOFOVIR DISOPROXIL FUMARATE
     Route: 048
     Dates: start: 201710, end: 20171120
  8. FTC/TDF TABLET [Suspect]
     Active Substance: EMTRICITABINE\TENOFOVIR DISOPROXIL FUMARATE
     Route: 048
     Dates: start: 20180109, end: 20180712
  9. CICLOPIROX. [Concomitant]
     Active Substance: CICLOPIROX
     Indication: PRODUCT USED FOR UNKNOWN INDICATION
     Route: 065
     Dates: start: 20180215
  10. PLACEBO [Suspect]
     Active Substance: UNSPECIFIED INGREDIENT
     Route: 048
     Dates: start: 20171121, end: 20180108
  11. PLACEBO [Suspect]
     Active Substance: UNSPECIFIED INGREDIENT
     Route: 048
     Dates: start: 20180109, end: 20180712
  12. PLACEBO [Suspect]
     Active Substance: UNSPECIFIED INGREDIENT
     Route: 048
     Dates: start: 20180718
  13. SILDENAFIL. [Concomitant]
     Active Substance: SILDENAFIL
     Indication: PRODUCT USED FOR UNKNOWN INDICATION
     Route: 065
     Dates: start: 201212
  14. FTC/TDF TABLET [Suspect]
     Active Substance: EMTRICITABINE\TENOFOVIR DISOPROXIL FUMARATE
     Route: 048
     Dates: start: 20170815, end: 201709
  15. FTC/TDF TABLET [Suspect]
     Active Substance: EMTRICITABINE\TENOFOVIR DISOPROXIL FUMARATE
     Route: 048
     Dates: start: 20171121, end: 20180108
  16. PLACEBO [Suspect]
     Active Substance: UNSPECIFIED INGREDIENT
     Route: 048
     Dates: start: 201710, end: 20171120
  17. FTC/TDF TABLET [Suspect]
     Active Substance: EMTRICITABINE\TENOFOVIR DISOPROXIL FUMARATE
     Indication: PROPHYLAXIS AGAINST HIV INFECTION
     Route: 048
     Dates: start: 20170524
  18. PLACEBO [Suspect]
     Active Substance: UNSPECIFIED INGREDIENT
     Route: 048
     Dates: start: 20170529, end: 20170813

REACTIONS (2)
  - Anaphylactic reaction [Recovered/Resolved]
  - Diverticulitis [Recovered/Resolved with Sequelae]

NARRATIVE: CASE EVENT DATE: 20180713
